FAERS Safety Report 5747280-8 (Version None)
Quarter: 2008Q2

REPORT INFORMATION
  Report Type: 
  Country: None (occurrence: None)
  Receive Date: 20080523
  Receipt Date: 20080516
  Transmission Date: 20081010
  Serious: Yes (Hospitalization)
  Sender: FDA-Public Use
  Company Number: GB-RANBAXY-2008RR-15256

PATIENT

DRUGS (9)
  1. AMIODARONE HCL [Suspect]
     Indication: ATRIAL FIBRILLATION
     Dosage: 200 MG, UNK
     Route: 048
  2. SIMVASTATIN [Suspect]
     Indication: BLOOD CHOLESTEROL INCREASED
     Dosage: 20 MG, UNK
     Route: 048
     Dates: end: 20080429
  3. AMLODIPINE [Concomitant]
     Dosage: 5 MG, UNK
  4. ASPIRIN [Concomitant]
     Dosage: 75 MG, UNK
  5. ISOSORBIDE MONONITRATE [Concomitant]
     Dosage: 40 MG, QD
  6. LANSOPRAZOLE [Concomitant]
     Dosage: 15 MG, UNK
  7. MONTELIKAST [Concomitant]
     Dosage: 10 MG, UNK
  8. ALBUTEROL [Concomitant]
     Dosage: 2 DF, UNK
  9. SERETIDE [Concomitant]
     Dosage: UNK

REACTIONS (3)
  - ALANINE AMINOTRANSFERASE INCREASED [None]
  - HEPATITIS ACUTE [None]
  - LOWER RESPIRATORY TRACT INFECTION [None]
